FAERS Safety Report 4520201-1 (Version None)
Quarter: 2004Q4

REPORT INFORMATION
  Report Type: 
  Country: None (occurrence: None)
  Receive Date: 20041027
  Receipt Date: 20040820
  Transmission Date: 20050328
  Serious: Yes (Death)
  Sender: FDA-Public Use
  Company Number: 04P-163-0271136-00

PATIENT
  Age: 83 Year
  Sex: Male

DRUGS (1)
  1. SYNTHROID [Suspect]
     Indication: HYPOTHYROIDISM
     Dosage: 50 MCG, 1 IN 1 D, PER ORAL
     Route: 048
     Dates: end: 20040801

REACTIONS (1)
  - DEATH [None]
